FAERS Safety Report 15607306 (Version 9)
Quarter: 2019Q1

REPORT INFORMATION
  Report Type: Spontaneous
  Country: US (occurrence: US)
  Receive Date: 20181112
  Receipt Date: 20190108
  Transmission Date: 20190417
  Serious: Yes (Other)
  Sender: FDA-Public Use
  Company Number: US-UNITED THERAPEUTICS-UNT-2018-018133

PATIENT
  Age: 41 Year
  Sex: Female
  Weight: 42.63 kg

DRUGS (8)
  1. TYVASO [Suspect]
     Active Substance: TREPROSTINIL
     Dosage: 18 ?G, UNK
     Dates: start: 20181106
  2. TYVASO [Suspect]
     Active Substance: TREPROSTINIL
     Indication: PULMONARY ARTERIAL HYPERTENSION
     Dosage: 18-54 MICROGRAMS, QID
     Dates: start: 20181024
  3. TYVASO [Suspect]
     Active Substance: TREPROSTINIL
     Dosage: UNK
  4. TYVASO [Suspect]
     Active Substance: TREPROSTINIL
     Dosage: 18 ?G, QID
  5. TYVASO [Suspect]
     Active Substance: TREPROSTINIL
     Dosage: 36 ?G, UNK
     Dates: start: 20181106
  6. TYVASO [Suspect]
     Active Substance: TREPROSTINIL
     Dosage: 24 ?G, UNK
     Dates: start: 20181106
  7. TYVASO [Suspect]
     Active Substance: TREPROSTINIL
     Dosage: 24 ?G, QID
  8. TRACLEER [Concomitant]
     Active Substance: BOSENTAN
     Indication: PRODUCT USED FOR UNKNOWN INDICATION
     Route: 065

REACTIONS (28)
  - Dizziness [Unknown]
  - Myalgia [Unknown]
  - Constipation [Unknown]
  - Back pain [Unknown]
  - Chest discomfort [Unknown]
  - Hypotension [Unknown]
  - Malaise [Unknown]
  - Chills [Unknown]
  - Haemoptysis [Unknown]
  - Arrhythmia [Unknown]
  - Hypoaesthesia [Unknown]
  - Nausea [Unknown]
  - Oropharyngeal pain [Unknown]
  - Headache [Unknown]
  - Bone pain [Unknown]
  - Abdominal pain [Unknown]
  - Bronchitis [Unknown]
  - Oedema [Unknown]
  - Nasal congestion [Unknown]
  - Flushing [Unknown]
  - Sinus disorder [Unknown]
  - Fatigue [Unknown]
  - Pain [Unknown]
  - Muscle spasms [Unknown]
  - Dysphonia [Unknown]
  - Pain in jaw [Unknown]
  - Cough [Recovered/Resolved]
  - Influenza like illness [Unknown]

NARRATIVE: CASE EVENT DATE: 2018
